FAERS Safety Report 6731228-3 (Version None)
Quarter: 2010Q2

REPORT INFORMATION
  Report Type: 
  Country: None (occurrence: None)
  Receive Date: 20100518
  Receipt Date: 20100510
  Transmission Date: 20101027
  Serious: Yes (Hospitalization, Other)
  Sender: FDA-Public Use
  Company Number: CA-ABBOTT-10P-028-0636874-00

PATIENT
  Sex: Female
  Weight: 45.4 kg

DRUGS (2)
  1. HUMIRA [Suspect]
     Indication: CROHN'S DISEASE
     Route: 058
     Dates: start: 20071116, end: 20100224
  2. CODEINE SULFATE [Concomitant]
     Indication: GASTROINTESTINAL HYPERMOTILITY
     Dates: start: 20060101

REACTIONS (4)
  - CROHN'S DISEASE [None]
  - INTESTINAL OBSTRUCTION [None]
  - MEDICAL DEVICE REMOVAL [None]
  - URINARY TRACT INFECTION [None]
